FAERS Safety Report 14900129 (Version 2)
Quarter: 2018Q4

REPORT INFORMATION
  Report Type: Spontaneous
  Country: FR (occurrence: FR)
  Receive Date: 20180516
  Receipt Date: 20181026
  Transmission Date: 20190204
  Serious: Yes (Disabling)
  Sender: FDA-Public Use
  Company Number: FR-MERCK KGAA-2047890

PATIENT
  Age: 47 Year
  Sex: Female

DRUGS (2)
  1. NOVOTHYROX [Suspect]
     Active Substance: LEVOTHYROXINE SODIUM
     Dates: start: 201709
  2. NOVOTHYROX [Suspect]
     Active Substance: LEVOTHYROXINE SODIUM
     Indication: THYROID CANCER
     Dates: start: 2017

REACTIONS (37)
  - Stress [Recovered/Resolved]
  - Fear [Recovered/Resolved]
  - Anxiety [Recovered/Resolved]
  - Hypothyroidism [Recovered/Resolved]
  - Vertigo [Recovered/Resolved]
  - Gastrointestinal pain [Recovered/Resolved]
  - Apathy [Recovered/Resolved]
  - Decreased activity [Recovered/Resolved]
  - Personal relationship issue [Recovered/Resolved]
  - Swelling face [Recovered/Resolved]
  - Impaired work ability [Recovered/Resolved]
  - Sleep disorder [Recovered/Resolved]
  - Insomnia [Recovered/Resolved]
  - Depression [Recovered/Resolved]
  - Anhedonia [Recovered/Resolved]
  - Paraesthesia [Recovered/Resolved]
  - Hair texture abnormal [Recovered/Resolved]
  - Social avoidant behaviour [Recovered/Resolved]
  - Diarrhoea [Recovered/Resolved]
  - Dyspnoea exertional [Recovered/Resolved]
  - Gastrointestinal disorder [Recovered/Resolved]
  - Affect lability [Recovered/Resolved]
  - Irritability [Recovered/Resolved]
  - Violence-related symptom [Recovered/Resolved]
  - Psychiatric symptom [Recovered/Resolved]
  - Restlessness [Recovered/Resolved]
  - Disability [Recovered/Resolved]
  - Affective disorder [Recovered/Resolved]
  - Memory impairment [Recovered/Resolved]
  - Asthenia [Recovered/Resolved]
  - Blood thyroid stimulating hormone abnormal [Recovered/Resolved]
  - Headache [Recovered/Resolved]
  - Deafness bilateral [Recovered/Resolved]
  - Disturbance in attention [Recovered/Resolved]
  - Hair disorder [Recovered/Resolved]
  - Discomfort [Recovered/Resolved]
  - Thyroglobulin decreased [Recovered/Resolved]

NARRATIVE: CASE EVENT DATE: 2017
